FAERS Safety Report 18374016 (Version 10)
Quarter: 2025Q2

REPORT INFORMATION
  Report Type: Spontaneous
  Country: AT (occurrence: AT)
  Receive Date: 20201013
  Receipt Date: 20250618
  Transmission Date: 20250717
  Serious: Yes (Hospitalization, Other)
  Sender: SANOFI AVENTIS
  Company Number: AT-EMA-DD-20200930-SAHARAN_H-110555

PATIENT
  Age: 66 Year
  Sex: Female
  Weight: 80.4 kg

DRUGS (218)
  1. TAXOTERE [Suspect]
     Active Substance: DOCETAXEL
     Indication: Breast cancer metastatic
     Dosage: 190 MG, Q3W, MOST RECENT DOSE PRIOR TO THE EVENTS: 09/JUN/2017
     Route: 042
     Dates: start: 20170224, end: 20170317
  2. TAXOTERE [Suspect]
     Active Substance: DOCETAXEL
     Dosage: 183 MG, QD
     Route: 042
     Dates: start: 20170519, end: 20170519
  3. TAXOTERE [Suspect]
     Active Substance: DOCETAXEL
     Dosage: 180 MG, Q3W
     Route: 042
     Dates: start: 20170609, end: 20170630
  4. TAXOTERE [Suspect]
     Active Substance: DOCETAXEL
     Dosage: 134.25 MG, Q3W
     Route: 042
     Dates: start: 20210317, end: 20210428
  5. TAXOTERE [Suspect]
     Active Substance: DOCETAXEL
     Dosage: 175 MG, QD
     Route: 042
     Dates: start: 20170410, end: 20170427
  6. TAXOTERE [Suspect]
     Active Substance: DOCETAXEL
     Dosage: 540 MG, Q3W
     Route: 042
     Dates: start: 20170609, end: 20170630
  7. TAXOTERE [Suspect]
     Active Substance: DOCETAXEL
     Dosage: 402.75 MG, Q3W
     Route: 042
     Dates: start: 20210317, end: 20210328
  8. TAXOTERE [Suspect]
     Active Substance: DOCETAXEL
     Dosage: 570 MG, Q3W
     Route: 042
     Dates: start: 20170224, end: 20170317
  9. TAXOTERE [Suspect]
     Active Substance: DOCETAXEL
     Dosage: 40.75 MG, Q3W
     Route: 042
     Dates: start: 20210317, end: 20210328
  10. TAXOTERE [Suspect]
     Active Substance: DOCETAXEL
     Dosage: 560 MG, Q3W
     Route: 042
     Dates: start: 20201230, end: 20210210
  11. TAXOTERE [Suspect]
     Active Substance: DOCETAXEL
     Dosage: 180 MG, Q3W
     Route: 065
  12. TAXOTERE [Suspect]
     Active Substance: DOCETAXEL
     Dosage: 462 MG, Q3W
     Route: 042
     Dates: start: 20170810, end: 20190213
  13. TAXOTERE [Suspect]
     Active Substance: DOCETAXEL
     Route: 042
     Dates: start: 20170410, end: 20170427
  14. TAXOTERE [Suspect]
     Active Substance: DOCETAXEL
     Dosage: 190 MG, Q3W
     Route: 065
     Dates: start: 20170224, end: 20170317
  15. TAXOTERE [Suspect]
     Active Substance: DOCETAXEL
     Dosage: 180 MG, Q3W
  16. TAXOTERE [Suspect]
     Active Substance: DOCETAXEL
     Dosage: 540 MG, Q3W
     Route: 042
     Dates: start: 20200422, end: 20200624
  17. TAXOTERE [Suspect]
     Active Substance: DOCETAXEL
     Route: 065
  18. TAXOTERE [Suspect]
     Active Substance: DOCETAXEL
     Route: 065
     Dates: start: 20170519, end: 20170519
  19. TAXOTERE [Suspect]
     Active Substance: DOCETAXEL
     Dosage: 408 MG, Q3W
     Route: 042
     Dates: start: 20210317, end: 20210428
  20. TAXOTERE [Suspect]
     Active Substance: DOCETAXEL
     Dosage: 134.25 MG, Q3W
     Route: 065
  21. TAXOTERE [Suspect]
     Active Substance: DOCETAXEL
  22. TAXOTERE [Suspect]
     Active Substance: DOCETAXEL
     Route: 042
     Dates: start: 20170224
  23. TAXOTERE [Suspect]
     Active Substance: DOCETAXEL
  24. TAXOTERE [Suspect]
     Active Substance: DOCETAXEL
     Dosage: 468 MG, Q3W
     Route: 042
     Dates: start: 20170317, end: 20170317
  25. TAXOTERE [Suspect]
     Active Substance: DOCETAXEL
     Dosage: 462 MG, Q3W
     Route: 042
     Dates: start: 20190213
  26. TAXOTERE [Suspect]
     Active Substance: DOCETAXEL
     Dosage: 134.250MG Q3W
  27. TAXOTERE [Suspect]
     Active Substance: DOCETAXEL
     Dosage: 432 MG, Q3W
     Route: 042
     Dates: start: 20170519, end: 20170519
  28. TAXOTERE [Suspect]
     Active Substance: DOCETAXEL
     Dosage: 624 MG, Q3W
     Route: 042
     Dates: start: 20170224, end: 20170224
  29. TAXOTERE [Suspect]
     Active Substance: DOCETAXEL
     Route: 065
     Dates: start: 20170519, end: 20170519
  30. TAXOTERE [Suspect]
     Active Substance: DOCETAXEL
     Route: 042
     Dates: start: 20170720, end: 20170720
  31. TAXOTERE [Suspect]
     Active Substance: DOCETAXEL
     Route: 065
  32. TAXOTERE [Suspect]
     Active Substance: DOCETAXEL
     Dosage: 414 MG, Q3W
     Route: 042
     Dates: start: 20170609, end: 20170630
  33. TAXOTERE [Suspect]
     Active Substance: DOCETAXEL
     Dosage: 468 MG, Q3W
     Route: 042
     Dates: start: 20170720, end: 20170720
  34. CAPECITABINE [Suspect]
     Active Substance: CAPECITABINE
     Indication: Breast cancer
     Dosage: 2000 MG, QD; DAILY FOR 2 WEEKS THEN PAUSE FOR 1 WEEK
     Route: 048
     Dates: start: 20191002, end: 20200107
  35. CAPECITABINE [Suspect]
     Active Substance: CAPECITABINE
     Indication: HER2 positive breast cancer
     Dosage: 300 MG, QD
     Dates: start: 20200108
  36. CAPECITABINE [Suspect]
     Active Substance: CAPECITABINE
     Dosage: 3000 MG, QD
     Route: 048
  37. CAPECITABINE [Suspect]
     Active Substance: CAPECITABINE
     Dosage: 3500 MG, QD, MOST RECENT DOSE PRIOR TO THE EVENT LYMPH NODE METASTATIS AXILLA AND PORT A CATH INFECT
     Route: 048
     Dates: start: 20191002, end: 20200107
  38. CAPECITABINE [Suspect]
     Active Substance: CAPECITABINE
     Dosage: 3000 MG, QD
     Route: 048
     Dates: start: 20200108, end: 20200421
  39. CAPECITABINE [Suspect]
     Active Substance: CAPECITABINE
     Dosage: 3500 MG, QD
     Route: 048
     Dates: start: 20210210, end: 20210224
  40. CAPECITABINE [Suspect]
     Active Substance: CAPECITABINE
     Dosage: 2000.000MG QD
     Route: 048
     Dates: start: 20201230, end: 20210203
  41. CAPECITABINE [Suspect]
     Active Substance: CAPECITABINE
     Dosage: 300 MG, QD
     Dates: start: 20200108
  42. BLEOMYCIN SULFATE [Suspect]
     Active Substance: BLEOMYCIN SULFATE
     Indication: Breast cancer metastatic
     Dosage: 26.85 MG, QD
     Route: 042
     Dates: start: 20200519, end: 20200519
  43. BLEOMYCIN SULFATE [Suspect]
     Active Substance: BLEOMYCIN SULFATE
     Indication: Breast cancer metastatic
     Dosage: 1 DF, QD
     Route: 042
     Dates: start: 20210105, end: 20210105
  44. BLEOMYCIN SULFATE [Suspect]
     Active Substance: BLEOMYCIN SULFATE
     Dosage: 26.85 MG, QD
     Route: 042
  45. BLEOMYCIN SULFATE [Suspect]
     Active Substance: BLEOMYCIN SULFATE
     Dosage: 26.85 MG, QD
     Route: 042
     Dates: start: 20210105, end: 20210105
  46. BLEOMYCIN SULFATE [Suspect]
     Active Substance: BLEOMYCIN SULFATE
     Dosage: 26.850MG QD
     Dates: start: 20200519, end: 20200519
  47. TRASTUZUMAB [Suspect]
     Active Substance: TRASTUZUMAB
     Indication: Breast cancer metastatic
     Dosage: 624 MG, QD; MOST RECENT DOSE PRIOR TO THE EVENTS: 10/AUG/2017
     Route: 041
     Dates: start: 20170224, end: 20170224
  48. TRASTUZUMAB [Suspect]
     Active Substance: TRASTUZUMAB
     Indication: HER2 positive breast cancer
     Route: 041
     Dates: start: 20170410, end: 20170427
  49. TRASTUZUMAB [Suspect]
     Active Substance: TRASTUZUMAB
     Dosage: 432 MG, QD
     Route: 065
     Dates: start: 20170519, end: 20170519
  50. TRASTUZUMAB [Suspect]
     Active Substance: TRASTUZUMAB
     Dosage: 414 MG, Q3W
     Route: 041
     Dates: start: 20170609, end: 20170630
  51. TRASTUZUMAB [Suspect]
     Active Substance: TRASTUZUMAB
     Dosage: 468 MG, QD
     Route: 041
     Dates: start: 20170720, end: 20170720
  52. TRASTUZUMAB [Suspect]
     Active Substance: TRASTUZUMAB
     Dosage: 462 MG, Q3W
     Route: 041
     Dates: start: 20170810, end: 20190213
  53. TRASTUZUMAB [Suspect]
     Active Substance: TRASTUZUMAB
     Dosage: 468 MG/KG, QD
     Route: 065
     Dates: start: 20200317, end: 20200317
  54. TRASTUZUMAB [Suspect]
     Active Substance: TRASTUZUMAB
     Dosage: 540 MG, Q3W
     Route: 041
     Dates: start: 20200422, end: 20200615
  55. TRASTUZUMAB [Suspect]
     Active Substance: TRASTUZUMAB
     Dosage: 560 MG, Q3W
     Route: 041
     Dates: start: 20201230, end: 20210210
  56. TRASTUZUMAB [Suspect]
     Active Substance: TRASTUZUMAB
     Dosage: 408 MG, Q3W
     Route: 041
     Dates: start: 20210317, end: 20210428
  57. TYKERB [Suspect]
     Active Substance: LAPATINIB DITOSYLATE
     Indication: Breast cancer
     Dosage: 1250 MG, QD, MOST RECENT DOSE PRIOR TO THE EVENT LYMPH NODE METASTATIS AXILLA AND PORT A CATH INFECT
     Route: 048
     Dates: start: 20191002, end: 20200107
  58. TYKERB [Suspect]
     Active Substance: LAPATINIB DITOSYLATE
     Indication: Breast cancer metastatic
     Dosage: 1000 MG, QD
     Route: 048
     Dates: start: 20200108, end: 20200421
  59. PERJETA [Suspect]
     Active Substance: PERTUZUMAB
     Indication: Breast cancer metastatic
     Dosage: 840 MG, QD, MOST RECENT DOSE PRIOR TO THE EVENT WORSENING OF BRAIN METASTASES: 17/MAR/2017 MOST RECE
     Route: 042
     Dates: start: 20170224, end: 20170224
  60. PERJETA [Suspect]
     Active Substance: PERTUZUMAB
     Dosage: 840 MG, QD
     Route: 042
     Dates: start: 20200422, end: 20200615
  61. PERJETA [Suspect]
     Active Substance: PERTUZUMAB
     Dosage: 840 MG, QD
     Route: 042
     Dates: start: 20210317, end: 20210428
  62. FASLODEX [Suspect]
     Active Substance: FULVESTRANT
     Indication: Breast cancer
     Dosage: MOST RECENT DOSE PRIOR TO THE EVENT LYMPH NODE METASTATIS AXILLA AND PORT A CATH INFECTION: 16/NOV/2
     Route: 058
     Dates: start: 20171002, end: 20171115
  63. FASLODEX [Suspect]
     Active Substance: FULVESTRANT
     Indication: Breast cancer metastatic
     Dosage: 500 MG, QM
     Route: 058
     Dates: start: 20171116, end: 20191001
  64. NAVELBINE [Suspect]
     Active Substance: VINORELBINE TARTRATE
     Indication: Breast cancer metastatic
     Dosage: 45 MG, Q3W
     Route: 042
     Dates: start: 20200422, end: 20200722
  65. NAVELBINE [Suspect]
     Active Substance: VINORELBINE TARTRATE
     Dosage: 45 MG, Q3W
     Route: 042
     Dates: start: 20200722
  66. FAM-TRASTUZUMAB DERUXTECAN-NXKI [Suspect]
     Active Substance: FAM-TRASTUZUMAB DERUXTECAN-NXKI
     Indication: Breast cancer metastatic
     Route: 058
     Dates: start: 20200814, end: 20201015
  67. KADCYLA [Suspect]
     Active Substance: ADO-TRASTUZUMAB EMTANSINE
     Indication: Breast cancer metastatic
     Dosage: 270 MG, Q3W
     Route: 042
     Dates: start: 20190306, end: 20190909
  68. TUCATINIB [Suspect]
     Active Substance: TUCATINIB
     Indication: Breast cancer metastatic
     Route: 048
     Dates: start: 20201230, end: 20210210
  69. DENOSUMAB [Suspect]
     Active Substance: DENOSUMAB
     Indication: Breast cancer metastatic
     Dosage: 120 MG, Q4W
     Route: 042
     Dates: start: 20201230, end: 20210210
  70. DOXIL [Suspect]
     Active Substance: DOXORUBICIN HYDROCHLORIDE
     Indication: Breast cancer metastatic
     Dosage: 104.4 MG, QD
     Route: 042
     Dates: start: 20210608, end: 20210608
  71. PEGFILGRASTIM [Suspect]
     Active Substance: PEGFILGRASTIM
     Indication: Product used for unknown indication
     Route: 065
     Dates: start: 20210610, end: 20210610
  72. XELODA [Suspect]
     Active Substance: CAPECITABINE
  73. CARBOXYMETHYLCELLULOSE SODIUM [Suspect]
     Active Substance: CARBOXYMETHYLCELLULOSE SODIUM
     Dates: start: 20210105, end: 20210413
  74. LAPATINIB [Suspect]
     Active Substance: LAPATINIB
     Indication: Breast cancer
     Dosage: MOST RECENT DOSE PRIOR TO THE EVENT LYMPH NODE METASTATIS AXILLA AND PORT A CATH INFECTION: 08/JAN/2
     Route: 048
     Dates: start: 20191002, end: 20200107
  75. ENHERTU [Suspect]
     Active Substance: FAM-TRASTUZUMAB DERUXTECAN-NXKI
     Indication: Breast cancer metastatic
     Dosage: 624 MILLIGRAM, QD/ MOST RECENT DOSE PRIOR TO THE EVENTS: 10/AUG/2017
     Route: 042
     Dates: start: 20200814, end: 20201015
  76. KCL [Concomitant]
     Active Substance: POTASSIUM CHLORIDE
     Dates: start: 20170429
  77. KCL [Concomitant]
     Active Substance: POTASSIUM CHLORIDE
     Dates: start: 20170429, end: 20190305
  78. KCL [Concomitant]
     Active Substance: POTASSIUM CHLORIDE
     Route: 048
     Dates: start: 20170429, end: 20190305
  79. XGEVA [Concomitant]
     Active Substance: DENOSUMAB
     Dates: start: 20170202
  80. XGEVA [Concomitant]
     Active Substance: DENOSUMAB
  81. XGEVA [Concomitant]
     Active Substance: DENOSUMAB
     Dates: start: 20170202, end: 20210521
  82. CALCIUM CARBONATE\CHOLECALCIFEROL [Concomitant]
     Active Substance: CALCIUM CARBONATE\CHOLECALCIFEROL
     Indication: Paronychia
     Dates: start: 20170203
  83. CALCIUM CARBONATE\CHOLECALCIFEROL [Concomitant]
     Active Substance: CALCIUM CARBONATE\CHOLECALCIFEROL
  84. OLIVE OIL [Concomitant]
     Active Substance: OLIVE OIL
     Indication: Paronychia
     Dates: start: 20191002, end: 20200512
  85. TAZOBACTAM [Concomitant]
     Active Substance: TAZOBACTAM
     Indication: Streptococcal sepsis
     Dates: start: 20200423, end: 20200504
  86. TAZOBACTAM [Concomitant]
     Active Substance: TAZOBACTAM
     Indication: Streptococcal sepsis
  87. TAZOBACTAM [Concomitant]
     Active Substance: TAZOBACTAM
     Indication: Product used for unknown indication
     Dates: start: 20200423, end: 20200504
  88. TAZOBACTAM [Concomitant]
     Active Substance: TAZOBACTAM
     Indication: Product used for unknown indication
     Dates: start: 20170708, end: 20170710
  89. TAZOBACTAM [Concomitant]
     Active Substance: TAZOBACTAM
     Route: 042
     Dates: start: 20170708, end: 20170710
  90. ACETAMINOPHEN [Concomitant]
     Active Substance: ACETAMINOPHEN
     Indication: Pseudomonal sepsis
     Dates: start: 20200506
  91. ACETAMINOPHEN [Concomitant]
     Active Substance: ACETAMINOPHEN
     Dates: start: 20200506, end: 20201215
  92. ACETAMINOPHEN [Concomitant]
     Active Substance: ACETAMINOPHEN
     Dates: start: 20210622, end: 20210622
  93. ACETAMINOPHEN [Concomitant]
     Active Substance: ACETAMINOPHEN
     Dates: start: 20200506, end: 20210622
  94. FUROSEMIDE [Concomitant]
     Active Substance: FUROSEMIDE
     Dates: start: 20170810, end: 20171213
  95. EDOXABAN TOSYLATE [Concomitant]
     Active Substance: EDOXABAN TOSYLATE
     Dates: start: 20191120, end: 20200608
  96. EDOXABAN TOSYLATE [Concomitant]
     Active Substance: EDOXABAN TOSYLATE
     Dates: start: 20200613, end: 20210611
  97. EDOXABAN TOSYLATE [Concomitant]
     Active Substance: EDOXABAN TOSYLATE
     Dates: start: 20200613, end: 20210611
  98. PREGABALIN [Concomitant]
     Active Substance: PREGABALIN
     Indication: Product used for unknown indication
     Dates: start: 20190821
  99. PREGABALIN [Concomitant]
     Active Substance: PREGABALIN
     Route: 065
     Dates: start: 20190821, end: 20210616
  100. PREGABALIN [Concomitant]
     Active Substance: PREGABALIN
     Dosage: 25 MG, QD
     Dates: start: 20170428, end: 20180123
  101. PANTOPRAZOLE [Concomitant]
     Active Substance: PANTOPRAZOLE
     Dates: start: 20170722, end: 20180327
  102. PANTOPRAZOLE [Concomitant]
     Active Substance: PANTOPRAZOLE
     Dates: start: 20200506, end: 20200519
  103. NOVALGIN (METAMIZOLE SODIUM) [Concomitant]
     Active Substance: METAMIZOLE SODIUM
     Dates: start: 20170329, end: 20180807
  104. LOVENOX [Concomitant]
     Active Substance: ENOXAPARIN SODIUM
     Dates: start: 20170224, end: 20171130
  105. EMEND [Concomitant]
     Active Substance: APREPITANT
     Dates: start: 20200428, end: 20200430
  106. DEXAMETHASONE [Concomitant]
     Active Substance: DEXAMETHASONE
     Indication: Brain oedema
     Dates: start: 20171004, end: 20171006
  107. DEXAMETHASONE [Concomitant]
     Active Substance: DEXAMETHASONE
     Dates: start: 20171007, end: 20171008
  108. DEXAMETHASONE [Concomitant]
     Active Substance: DEXAMETHASONE
     Dates: start: 20200422, end: 20200505
  109. OLEOVIT [BENZALKONIUM CHLORIDE;DEXPANTHENOL;RETINOL PALMITATE] [Concomitant]
     Dosage: 30 DROP, QW
     Route: 048
     Dates: start: 20170329, end: 20210615
  110. LEVOFLOXACIN [Concomitant]
     Active Substance: LEVOFLOXACIN
     Indication: Product used for unknown indication
     Dates: start: 20200506, end: 20200512
  111. LEVOFLOXACIN [Concomitant]
     Active Substance: LEVOFLOXACIN
     Route: 065
  112. FENTANYL [Concomitant]
     Active Substance: FENTANYL
     Dates: start: 20200515
  113. FENTANYL [Concomitant]
     Active Substance: FENTANYL
     Route: 062
     Dates: start: 20200515
  114. EUTHYROX [Concomitant]
     Active Substance: LEVOTHYROXINE SODIUM
     Dates: start: 20170303
  115. LEUKICHTAN [COD-LIVER OIL;ICHTHAMMOL] [Concomitant]
     Dates: start: 20200430, end: 20200515
  116. CITRIC ACID MONOHYDRATE\POTASSIUM BICARBONATE\POTASSIUM CITRATE [Concomitant]
     Active Substance: CITRIC ACID MONOHYDRATE\POTASSIUM BICARBONATE\POTASSIUM CITRATE
     Dates: start: 20200427, end: 20200428
  117. BETAISODONA [Concomitant]
     Active Substance: POVIDONE-IODINE
     Indication: Skin fissures
     Dates: start: 20200430, end: 20200515
  118. BETAISODONA [Concomitant]
     Active Substance: POVIDONE-IODINE
     Dates: start: 20200430, end: 20200515
  119. ZOFRAN [Concomitant]
     Active Substance: ONDANSETRON HYDROCHLORIDE
     Dates: start: 20200506
  120. DIFLUCORTOLONE;LIDOCAINE [Concomitant]
     Indication: Skin fissures
     Route: 065
     Dates: start: 20200430, end: 20200515
  121. HALSET [CETYLPYRIDINIUM CHLORIDE] [Concomitant]
     Indication: Cough
     Dates: start: 20210611, end: 20210615
  122. SCOTTOPECT [Concomitant]
     Indication: Cough
     Dates: start: 20210611, end: 20210613
  123. SCOTTOPECT [Concomitant]
     Dates: start: 20210611, end: 20210613
  124. SCOTTOPECT [Concomitant]
     Dates: start: 20210611, end: 20210613
  125. SCOTTOPECT [Concomitant]
     Dates: start: 20210611, end: 20210613
  126. POLYETHYLENE GLYCOL 3350\POTASSIUM CHLORIDE\SODIUM BICARBONATE\SODIUM [Concomitant]
     Active Substance: POLYETHYLENE GLYCOL 3350\POTASSIUM CHLORIDE\SODIUM BICARBONATE\SODIUM CHLORIDE
     Indication: Product used for unknown indication
     Dates: start: 20210608, end: 20210616
  127. POLYETHYLENE GLYCOL 3350\POTASSIUM CHLORIDE\SODIUM BICARBONATE\SODIUM [Concomitant]
     Active Substance: POLYETHYLENE GLYCOL 3350\POTASSIUM CHLORIDE\SODIUM BICARBONATE\SODIUM CHLORIDE
     Indication: Product used for unknown indication
     Dates: start: 20210608, end: 20210616
  128. POLYETHYLENE GLYCOL 3350\POTASSIUM CHLORIDE\SODIUM BICARBONATE\SODIUM [Concomitant]
     Active Substance: POLYETHYLENE GLYCOL 3350\POTASSIUM CHLORIDE\SODIUM BICARBONATE\SODIUM CHLORIDE
     Dates: start: 20210608, end: 20210616
  129. POLYETHYLENE GLYCOL 3350\POTASSIUM CHLORIDE\SODIUM BICARBONATE\SODIUM [Concomitant]
     Active Substance: POLYETHYLENE GLYCOL 3350\POTASSIUM CHLORIDE\SODIUM BICARBONATE\SODIUM CHLORIDE
     Route: 065
     Dates: start: 20170709, end: 20170709
  130. LACTULOSE [Concomitant]
     Active Substance: LACTULOSE
  131. LACTULOSE [Concomitant]
     Active Substance: LACTULOSE
  132. HYDROMORPHONE HYDROCHLORIDE [Concomitant]
     Active Substance: HYDROMORPHONE HYDROCHLORIDE
     Dates: start: 20210611, end: 20210615
  133. HYDROMORPHONE HYDROCHLORIDE [Concomitant]
     Active Substance: HYDROMORPHONE HYDROCHLORIDE
     Dates: start: 20210611, end: 20210615
  134. HYDROMORPHONE HYDROCHLORIDE [Concomitant]
     Active Substance: HYDROMORPHONE HYDROCHLORIDE
     Dates: start: 20210611, end: 20210615
  135. ONDANSETRON [Concomitant]
     Active Substance: ONDANSETRON
     Indication: Gastrointestinal disorder
     Dates: start: 20210608, end: 20210610
  136. DRONABINOL [Concomitant]
     Active Substance: DRONABINOL
     Dates: start: 20210608, end: 20210612
  137. DRONABINOL [Concomitant]
     Active Substance: DRONABINOL
     Dates: start: 20210608, end: 20210612
  138. VITAMIN C [Concomitant]
     Active Substance: ASCORBIC ACID
     Indication: Gastrointestinal disorder
     Dates: start: 20210611, end: 20210614
  139. ZIEXTENZO [Concomitant]
     Active Substance: PEGFILGRASTIM-BMEZ
     Dates: start: 20210610, end: 20210610
  140. PONVERIDOL [Concomitant]
     Indication: Gastrointestinal disorder
     Dates: start: 20210618, end: 20210623
  141. PONVERIDOL [Concomitant]
     Dates: start: 20210618, end: 20210623
  142. PONVERIDOL [Concomitant]
     Dates: start: 20210618, end: 20210623
  143. PONVERIDOL [Concomitant]
     Dates: start: 20210618, end: 20210623
  144. PARACODIN [DIHYDROCODEINE] [Concomitant]
     Indication: Cough
     Dates: start: 20210428, end: 20210615
  145. PARACODIN [DIHYDROCODEINE] [Concomitant]
     Dates: start: 20210608, end: 20210610
  146. PARACODIN [DIHYDROCODEINE] [Concomitant]
     Dates: start: 20170708, end: 20170708
  147. DROPERIDOL [Concomitant]
     Active Substance: DROPERIDOL
     Indication: Gastrointestinal disorder
     Dates: start: 20210612, end: 20210617
  148. MORPHINE [Concomitant]
     Active Substance: MORPHINE
     Indication: Dyspnoea
     Dates: start: 20210521, end: 20210616
  149. MORPHINE [Concomitant]
     Active Substance: MORPHINE
     Indication: Dyspnoea
     Dates: start: 20210616, end: 20210623
  150. MORPHINE [Concomitant]
     Active Substance: MORPHINE
     Dates: start: 20210616, end: 20210623
  151. MORPHINE [Concomitant]
     Active Substance: MORPHINE
     Dates: start: 20210521, end: 20210616
  152. ALPRAZOLAM [Concomitant]
     Active Substance: ALPRAZOLAM
     Indication: Restlessness
     Dates: start: 20210613, end: 20210615
  153. ALPRAZOLAM [Concomitant]
     Active Substance: ALPRAZOLAM
     Dates: start: 20210613, end: 20210615
  154. ALPRAZOLAM [Concomitant]
     Active Substance: ALPRAZOLAM
  155. NERIFORTE [Concomitant]
     Indication: Skin fissures
  156. NERIFORTE [Concomitant]
     Dates: start: 20200430, end: 20200515
  157. NERIFORTE [Concomitant]
     Route: 061
     Dates: start: 20200430, end: 20200515
  158. BUTYLSCOPOLAMINE BROMIDE [Concomitant]
     Active Substance: BUTYLSCOPOLAMINE BROMIDE
     Indication: Gastrointestinal disorder
     Dates: start: 20210618, end: 20210618
  159. BUTYLSCOPOLAMINE BROMIDE [Concomitant]
     Active Substance: BUTYLSCOPOLAMINE BROMIDE
     Dates: start: 20210618, end: 20210618
  160. BUTYLSCOPOLAMINE BROMIDE [Concomitant]
     Active Substance: BUTYLSCOPOLAMINE BROMIDE
     Dates: start: 20210618, end: 20210618
  161. LORAZEPAM [Concomitant]
     Active Substance: LORAZEPAM
     Indication: Restlessness
     Dates: start: 20210618, end: 20210623
  162. LORAZEPAM [Concomitant]
     Active Substance: LORAZEPAM
     Dates: start: 20210618, end: 20210623
  163. LORAZEPAM [Concomitant]
     Active Substance: LORAZEPAM
     Indication: Restlessness
     Dates: start: 20210611, end: 20210621
  164. BETAMETHASONE DIPROPIONATE [Concomitant]
     Active Substance: BETAMETHASONE DIPROPIONATE
     Indication: Eczema
     Dates: start: 20191122
  165. PANTOPRAZOLE [Concomitant]
     Active Substance: PANTOPRAZOLE
     Indication: Gastrointestinal disorder
     Dates: start: 20210317, end: 20210607
  166. PANTOPRAZOLE [Concomitant]
     Active Substance: PANTOPRAZOLE
     Dates: start: 20210618, end: 20210623
  167. PANTOPRAZOLE [Concomitant]
     Active Substance: PANTOPRAZOLE
     Dates: start: 20210608, end: 20210610
  168. CARBOXYMETHYLCELLULOSE SODIUM [Concomitant]
     Active Substance: CARBOXYMETHYLCELLULOSE SODIUM
  169. CARBOXYMETHYLCELLULOSE SODIUM [Concomitant]
     Active Substance: CARBOXYMETHYLCELLULOSE SODIUM
     Dates: start: 20210105, end: 20210413
  170. AMOXICILLIN\CLAVULANATE POTASSIUM [Concomitant]
     Active Substance: AMOXICILLIN\CLAVULANATE POTASSIUM
  171. Elomel [Concomitant]
     Indication: Product used for unknown indication
  172. Elomel [Concomitant]
  173. SALINE [Concomitant]
     Active Substance: SODIUM CHLORIDE
     Indication: Product used for unknown indication
  174. SALINE [Concomitant]
     Active Substance: SODIUM CHLORIDE
  175. Metogastron [Concomitant]
     Dates: start: 20200506
  176. MARINOL [Concomitant]
     Active Substance: DRONABINOL
     Indication: Gastrointestinal disorder
     Dates: start: 20210608, end: 20210612
  177. TUCATINIB [Concomitant]
     Active Substance: TUCATINIB
     Indication: Breast cancer metastatic
     Dosage: 300 MG, BID
     Route: 048
     Dates: start: 20201230, end: 20210210
  178. Dexagenta [Concomitant]
     Indication: Brain oedema
     Dates: start: 20171004, end: 20171006
  179. Dexagenta [Concomitant]
     Dates: start: 20171007, end: 20171008
  180. Morapid [Concomitant]
     Indication: Dyspnoea
     Dates: start: 20210616, end: 20210623
  181. Morapid [Concomitant]
     Dates: start: 20210521, end: 20210616
  182. AMPHO-MORONAL [Concomitant]
     Active Substance: AMPHOTERICIN B
     Indication: Product used for unknown indication
  183. Healonid [Concomitant]
     Indication: Product used for unknown indication
     Route: 065
  184. ONDANSETRON HYDROCHLORIDE [Concomitant]
     Active Substance: ONDANSETRON HYDROCHLORIDE
     Indication: Gastrointestinal disorder
     Route: 065
     Dates: start: 20210611, end: 20210616
  185. ONDANSETRON HYDROCHLORIDE [Concomitant]
     Active Substance: ONDANSETRON HYDROCHLORIDE
     Route: 065
     Dates: start: 20200506
  186. ONDANSETRON HYDROCHLORIDE [Concomitant]
     Active Substance: ONDANSETRON HYDROCHLORIDE
     Dates: start: 20170329, end: 20170809
  187. AMOXICILLIN\CLAVULANATE POTASSIUM [Concomitant]
     Active Substance: AMOXICILLIN\CLAVULANATE POTASSIUM
     Indication: Product used for unknown indication
     Dosage: 1 G, QD
     Dates: start: 20170711, end: 20170713
  188. AMOXICILLIN\CLAVULANATE POTASSIUM [Concomitant]
     Active Substance: AMOXICILLIN\CLAVULANATE POTASSIUM
     Dates: start: 20200604, end: 20200605
  189. FILGRASTIM [Concomitant]
     Active Substance: FILGRASTIM
     Indication: Product used for unknown indication
     Route: 058
     Dates: start: 20170704, end: 20170708
  190. FILGRASTIM [Concomitant]
     Active Substance: FILGRASTIM
     Dates: start: 20200701
  191. LIDOCAINE [Concomitant]
     Active Substance: LIDOCAINE
     Indication: Product used for unknown indication
     Dates: start: 20200610, end: 20200610
  192. Cal c vita [Concomitant]
     Dates: start: 20170203, end: 20210612
  193. Calcium genericon [Concomitant]
     Dates: start: 20170203
  194. POTASSIUM CHLORIDE [Concomitant]
     Active Substance: POTASSIUM CHLORIDE
     Indication: Product used for unknown indication
  195. LYRICA [Concomitant]
     Active Substance: PREGABALIN
     Indication: Product used for unknown indication
     Dosage: 25 MG, QD
     Dates: start: 20170428, end: 20180123
  196. LYRICA [Concomitant]
     Active Substance: PREGABALIN
     Indication: Product used for unknown indication
     Route: 065
     Dates: start: 20190821, end: 20210616
  197. AUGMENTIN [Concomitant]
     Active Substance: AMOXICILLIN\CLAVULANATE POTASSIUM
     Indication: Product used for unknown indication
     Dates: start: 20170710, end: 20170710
  198. AUGMENTIN [Concomitant]
     Active Substance: AMOXICILLIN\CLAVULANATE POTASSIUM
     Indication: Product used for unknown indication
  199. SODIUM CACODYLATE [Concomitant]
     Active Substance: SODIUM CACODYLATE
     Indication: Product used for unknown indication
     Route: 065
     Dates: start: 20210616, end: 20210623
  200. SODIUM CACODYLATE [Concomitant]
     Active Substance: SODIUM CACODYLATE
     Indication: Dyspnoea
     Dates: start: 20210521, end: 20210616
  201. SODIUM CACODYLATE [Concomitant]
     Active Substance: SODIUM CACODYLATE
     Indication: Dyspnoea
  202. SODIUM CACODYLATE [Concomitant]
     Active Substance: SODIUM CACODYLATE
     Indication: Dyspnoea
  203. CEFEPIME [Concomitant]
     Active Substance: CEFEPIME HYDROCHLORIDE
     Indication: Product used for unknown indication
     Route: 065
  204. CEFEPIME [Concomitant]
     Active Substance: CEFEPIME HYDROCHLORIDE
     Indication: Product used for unknown indication
  205. Halset [Concomitant]
     Indication: Cough
     Dates: start: 20210611, end: 20210615
  206. Actimaris [Concomitant]
     Indication: Product used for unknown indication
     Dates: start: 20200108, end: 20200128
  207. TRAZODONE HYDROCHLORIDE [Concomitant]
     Active Substance: TRAZODONE HYDROCHLORIDE
  208. FILGRASTIM [Concomitant]
     Active Substance: FILGRASTIM
  209. SILICON [Concomitant]
     Active Substance: SILICON
  210. MORPHINE [Concomitant]
     Active Substance: MORPHINE
  211. CETYLPYRIDINIUM CHLORIDE [Concomitant]
     Active Substance: CETYLPYRIDINIUM CHLORIDE
  212. APREPITANT [Concomitant]
     Active Substance: APREPITANT
  213. Motrim [Concomitant]
  214. DROPERIDOL [Concomitant]
     Active Substance: DROPERIDOL
  215. Paspertin [Concomitant]
     Indication: Gastrointestinal disorder
     Dates: start: 20210608, end: 20210610
  216. Paspertin [Concomitant]
     Route: 065
     Dates: start: 20200506, end: 20201212
  217. Paspertin [Concomitant]
     Dates: start: 20210611, end: 20210623
  218. BETAMETHASONE DIPROPIONATE [Concomitant]
     Active Substance: BETAMETHASONE DIPROPIONATE
     Indication: Eczema
     Route: 001
     Dates: start: 20191122, end: 20191215

REACTIONS (27)
  - Metastases to central nervous system [Not Recovered/Not Resolved]
  - Brain oedema [Not Recovered/Not Resolved]
  - Metastases to lymph nodes [Not Recovered/Not Resolved]
  - C-reactive protein increased [Not Recovered/Not Resolved]
  - Streptococcal sepsis [Recovered/Resolved]
  - Pseudomonal sepsis [Recovered/Resolved]
  - Sepsis [Recovered/Resolved]
  - Vascular device infection [Recovered/Resolved]
  - Nausea [Recovered/Resolved]
  - Fatigue [Recovered/Resolved]
  - Vascular device infection [Recovered/Resolved]
  - Varicose vein [Not Recovered/Not Resolved]
  - Skin fissures [Recovered/Resolved]
  - Nail bed inflammation [Not Recovered/Not Resolved]
  - Restlessness [Unknown]
  - Back pain [Recovered/Resolved]
  - Vomiting [Recovered/Resolved]
  - Pleural effusion [Recovered/Resolved]
  - Candida infection [Recovered/Resolved]
  - Paronychia [Recovered/Resolved]
  - Eczema [Not Recovered/Not Resolved]
  - Nasal mucosal disorder [Recovered/Resolved]
  - Varicose vein [Not Recovered/Not Resolved]
  - Restlessness [Not Recovered/Not Resolved]
  - Intentional product use issue [Unknown]
  - Intentional product use issue [Unknown]
  - Off label use [Unknown]

NARRATIVE: CASE EVENT DATE: 20170921
